FAERS Safety Report 23989596 (Version 2)
Quarter: 2024Q2

REPORT INFORMATION
  Report Type: Report from Study
  Country: PT (occurrence: PT)
  Receive Date: 20240619
  Receipt Date: 20240620
  Transmission Date: 20240716
  Serious: Yes (Death, Other)
  Sender: FDA-Public Use
  Company Number: PT-ABBVIE-5804568

PATIENT
  Age: 78 Year
  Sex: Male

DRUGS (8)
  1. CARBIDOPA\LEVODOPA [Suspect]
     Active Substance: CARBIDOPA\LEVODOPA
     Indication: Parkinson^s disease
     Dosage: 20 MG + 5 MG?MORN:14CC;MAIN:3.2CC/H;EXTRA:1CC
     Route: 050
     Dates: start: 20201215, end: 20201215
  2. CARBIDOPA\LEVODOPA [Suspect]
     Active Substance: CARBIDOPA\LEVODOPA
     Dosage: 20 MG + 5 MG?MORN:13.8CC;MAIN:5.4CC/H;EXTRA:0CC
     Route: 050
     Dates: start: 202311
  3. CARBIDOPA\LEVODOPA [Suspect]
     Active Substance: CARBIDOPA\LEVODOPA
     Dosage: 20 MG + 5 MG?MORN:9CC;MAIN:3.2CC/H;EXTRA:1CC
     Route: 050
     Dates: start: 20201216
  4. HYDROCHLOROTHIAZIDE\LOSARTAN [Concomitant]
     Active Substance: HYDROCHLOROTHIAZIDE\LOSARTAN
     Indication: Hypertension
     Dosage: START DATE TEXT: BEFORE DUODOPA
  5. SIMVASTATIN [Concomitant]
     Active Substance: SIMVASTATIN
     Indication: Product used for unknown indication
     Dosage: START DATE TEXT: BEFORE DUODOPA
     Route: 065
  6. MINIRIN [Concomitant]
     Active Substance: DESMOPRESSIN ACETATE
     Indication: Product used for unknown indication
     Dosage: START DATE TEXT: BEFORE DUODOPA
     Route: 065
  7. RIVASTIGMINE [Concomitant]
     Active Substance: RIVASTIGMINE
     Indication: Parkinson^s disease
     Dosage: START DATE TEXT: BEFORE DUODOPA
     Route: 065
  8. Daflon [Concomitant]
     Indication: Peripheral venous disease
     Dosage: MICRONIZED PURIFIED FLAVONOID FRACTION, START DATE TEXT: BEFORE DUODOPA
     Route: 065

REACTIONS (7)
  - Cardio-respiratory arrest [Fatal]
  - Blood glucose increased [Not Recovered/Not Resolved]
  - Syncope [Recovered/Resolved]
  - Pyrexia [Unknown]
  - Urinary tract infection [Unknown]
  - Fatigue [Unknown]
  - Haematuria [Unknown]

NARRATIVE: CASE EVENT DATE: 20240614
